FAERS Safety Report 4373420-1 (Version None)
Quarter: 2004Q2

REPORT INFORMATION
  Report Type: 
  Country: None (occurrence: None)
  Receive Date: 20040603
  Receipt Date: 20040526
  Transmission Date: 20050107
  Serious: Yes (Other)
  Sender: FDA-Public Use
  Company Number: 2004215553US

PATIENT
  Sex: Male

DRUGS (1)
  1. CLEOCIN HCL [Suspect]
     Dosage: 150 MG, TID

REACTIONS (1)
  - GASTROINTESTINAL ULCER [None]
